FAERS Safety Report 4396697-5 (Version None)
Quarter: 2004Q3

REPORT INFORMATION
  Report Type: 
  Country: None (occurrence: None)
  Receive Date: 20040708
  Receipt Date: 20040623
  Transmission Date: 20050211
  Serious: Yes (Death, Hospitalization)
  Sender: FDA-Public Use
  Company Number: 2004220781JP

PATIENT
  Age: 62 Year
  Sex: Female

DRUGS (3)
  1. FARMORUBICIN (EPIRUBICIN) [Suspect]
     Indication: BREAST CANCER METASTATIC
     Dosage: 6
     Dates: start: 20000501
  2. CYCLOPHOSPHAMIDE [Suspect]
     Indication: BREAST CANCER METASTATIC
  3. TAMOXIFEN [Concomitant]

REACTIONS (7)
  - ACUTE MYELOID LEUKAEMIA [None]
  - BLAST CELLS PRESENT [None]
  - MALAISE [None]
  - METASTASES TO LYMPH NODES [None]
  - METASTASES TO PLEURA [None]
  - PNEUMONIA [None]
  - PYREXIA [None]
